FAERS Safety Report 21989989 (Version 3)
Quarter: 2023Q2

REPORT INFORMATION
  Report Type: Spontaneous
  Country: PR (occurrence: PR)
  Receive Date: 20230214
  Receipt Date: 20230419
  Transmission Date: 20230721
  Serious: No
  Sender: FDA-Public Use
  Company Number: PR-PFIZER INC-202300060864

PATIENT
  Age: 55 Year
  Sex: Male

DRUGS (2)
  1. SOMAVERT [Suspect]
     Active Substance: PEGVISOMANT
     Indication: Gigantism
     Dosage: 10 MG, 1X/DAY (10MG INJECTION SUBCUTANEOUS ONCE A DAY)
     Route: 058
     Dates: start: 201802
  2. SOMAVERT [Suspect]
     Active Substance: PEGVISOMANT
     Indication: Acromegaly
     Dosage: 10 MG, DAILY
     Route: 058
     Dates: start: 201802

REACTIONS (2)
  - Drug dose omission by device [Unknown]
  - Syringe issue [Unknown]

NARRATIVE: CASE EVENT DATE: 20230123
